FAERS Safety Report 5492206-8 (Version None)
Quarter: 2007Q4

REPORT INFORMATION
  Report Type: 
  Country: None (occurrence: None)
  Receive Date: 20071022
  Receipt Date: 20071010
  Transmission Date: 20080405
  Serious: Yes (Disabling, Other)
  Sender: FDA-Public Use
  Company Number: JP-JNJFOC-20070902707

PATIENT
  Sex: Female

DRUGS (12)
  1. LEVOFLOXACIN [Suspect]
     Indication: URINARY TRACT INFECTION
     Route: 048
  2. MICARDIS [Concomitant]
     Indication: HYPERTENSION
     Route: 048
  3. MICARDIS [Concomitant]
     Indication: CEREBRAL HAEMORRHAGE
     Route: 048
  4. DEPAKENE [Concomitant]
     Route: 048
  5. DEPAKENE [Concomitant]
     Indication: CEREBRAL HAEMORRHAGE
     Route: 048
  6. EBRANTIL [Concomitant]
     Indication: HYPERTENSION
     Route: 048
  7. EBRANTIL [Concomitant]
     Indication: NEUROGENIC BLADDER
     Route: 048
  8. MAGMITT [Concomitant]
     Indication: CONSTIPATION
     Route: 048
  9. BIO THREE [Concomitant]
     Indication: CONSTIPATION
     Route: 048
  10. BIO THREE [Concomitant]
     Indication: DIARRHOEA
     Route: 048
  11. ENALAPRIL MALEATE [Concomitant]
     Indication: CEREBRAL HAEMORRHAGE
     Route: 048
  12. ENALAPRIL MALEATE [Concomitant]
     Indication: HYPERTENSION
     Route: 048

REACTIONS (1)
  - DYSKINESIA [None]
